FAERS Safety Report 16094000 (Version 1)
Quarter: 2019Q1

REPORT INFORMATION
  Report Type: Spontaneous
  Country: US (occurrence: US)
  Receive Date: 20190320
  Receipt Date: 20190320
  Transmission Date: 20190418
  Serious: No
  Sender: FDA-Public Use
  Company Number: US-ELI_LILLY_AND_COMPANY-US201903009596

PATIENT
  Sex: Female

DRUGS (3)
  1. TRULICITY [Suspect]
     Active Substance: DULAGLUTIDE
     Indication: INSULIN RESISTANCE
  2. TRULICITY [Suspect]
     Active Substance: DULAGLUTIDE
     Indication: BLOOD GLUCOSE INCREASED
     Dosage: 1.5 MG, UNKNOWN
     Route: 065
     Dates: start: 20190306
  3. TRULICITY [Suspect]
     Active Substance: DULAGLUTIDE
     Indication: WEIGHT INCREASED

REACTIONS (3)
  - Nausea [Recovering/Resolving]
  - Dyspepsia [Unknown]
  - Gastrooesophageal reflux disease [Unknown]

NARRATIVE: CASE EVENT DATE: 201903
